FAERS Safety Report 6177462-5 (Version None)
Quarter: 2009Q2

REPORT INFORMATION
  Report Type: 
  Country: None (occurrence: None)
  Receive Date: 20090504
  Receipt Date: 20090425
  Transmission Date: 20091009
  Serious: Yes (Other)
  Sender: FDA-Public Use
  Company Number: US-BAYER-200826444GPV

PATIENT
  Age: 54 Year
  Sex: Male

DRUGS (11)
  1. CAMPATH [Suspect]
     Indication: IMMUNOSUPPRESSION
     Dosage: TOTAL DAILY DOSE: 30 MG
     Route: 065
     Dates: start: 20061101, end: 20061101
  2. TACROLIMUS [Concomitant]
     Indication: IMMUNOSUPPRESSION
     Route: 061
     Dates: start: 20061101
  3. TACROLIMUS [Concomitant]
     Dosage: LEVELS MAINTAINED AT 10-12 NG/ML
     Route: 065
     Dates: start: 20061101, end: 20070501
  4. TACROLIMUS [Concomitant]
     Dosage: LEVELS MAINTAINED AT 6-9 NG/ML AFTER 6 MONTHS OF TREATMENT
     Route: 065
  5. CELLCEPT [Concomitant]
     Indication: IMMUNOSUPPRESSION
     Dosage: DOSE REDUCTION DUE TO NEUTROPENIA
     Route: 065
  6. CELLCEPT [Concomitant]
     Route: 065
  7. CELLCEPT [Concomitant]
     Dosage: ON DAY +54 POSTTRANSPLANT TEMPORARILY DISCONTINUED FOR LEUCOPENIA
     Route: 065
     Dates: start: 20061101
  8. METHYLPREDNISOLONE 4MG TAB [Concomitant]
     Indication: DRUG TOXICITY PROPHYLAXIS
     Dosage: PERIOOPERATIVELY (3 DOSES)
     Route: 065
  9. VALCYTE [Concomitant]
     Indication: ANTIVIRAL PROPHYLAXIS
     Dosage: ON DAY +54 POSTTRANSPLANT TEMPORARILY DISCONTINUED FOR LEUCOPENIA
     Route: 065
  10. BACTRIM [Concomitant]
     Indication: INFECTION PROPHYLAXIS
     Dosage: ON DAY +54 POSTTRANSPLANT TEMPORARILY DISCONTINUED FOR LEUCOPENIA
     Route: 065
  11. STATINS NOS [Concomitant]
     Indication: HYPERLIPIDAEMIA

REACTIONS (4)
  - CYTOMEGALOVIRUS COLITIS [None]
  - LEUKOPENIA [None]
  - LYMPHOPENIA [None]
  - TRANSPLANT REJECTION [None]
